FAERS Safety Report 19410906 (Version 1)
Quarter: 2021Q2

REPORT INFORMATION
  Report Type: Spontaneous
  Country: GB (occurrence: GB)
  Receive Date: 20210614
  Receipt Date: 20210614
  Transmission Date: 20210717
  Serious: No
  Sender: FDA-Public Use
  Company Number: GB-ALKEM LABORATORIES LIMITED-GB-ALKEM-2021-01199

PATIENT

DRUGS (15)
  1. QUININE [Concomitant]
     Active Substance: QUININE
     Indication: ILL-DEFINED DISORDER
     Dosage: UNK
     Route: 065
     Dates: start: 20191213
  2. SOLIFENACIN [Suspect]
     Active Substance: SOLIFENACIN
     Indication: PRODUCT USED FOR UNKNOWN INDICATION
     Dosage: 5 MILLIGRAM
     Route: 065
     Dates: start: 20210111
  3. CETRABEN EMOLLIENT CREAM [Concomitant]
     Indication: PRODUCT USED FOR UNKNOWN INDICATION
     Dosage: USE AS EMOLLIENT
     Route: 065
     Dates: start: 20200401
  4. FOSFOMYCIN [Concomitant]
     Active Substance: FOSFOMYCIN
     Indication: ILL-DEFINED DISORDER
     Dosage: ONE SACHET IMMEDIATELY
     Route: 065
     Dates: start: 20201124, end: 20201125
  5. IBUPROFEN. [Concomitant]
     Active Substance: IBUPROFEN
     Indication: ILL-DEFINED DISORDER
     Dosage: APPLY 3?4 TIMES/DAY
     Route: 065
     Dates: start: 20200123
  6. SALICYLIC ACID. [Concomitant]
     Active Substance: SALICYLIC ACID
     Indication: ILL-DEFINED DISORDER
     Dosage: APPLY 4 TIMES/DAY
     Route: 065
     Dates: start: 20200204
  7. TRAMADOL. [Concomitant]
     Active Substance: TRAMADOL
     Indication: ILL-DEFINED DISORDER
     Dosage: ONE TO BE TAKEN TWICE A DAY
     Route: 065
     Dates: start: 20201221
  8. PANTOPRAZOLE [Concomitant]
     Active Substance: PANTOPRAZOLE
     Indication: ILL-DEFINED DISORDER
     Dosage: TAKE ONE DAILY
     Route: 065
     Dates: start: 20191213
  9. PARACETAMOL [Concomitant]
     Active Substance: ACETAMINOPHEN
     Indication: ILL-DEFINED DISORDER
     Dosage: ONE TO BE TAKEN EVERY 4?6 HOURS UP TO FOUR TIME...
     Route: 065
     Dates: start: 20200804
  10. SOLIFENACIN [Concomitant]
     Active Substance: SOLIFENACIN
     Indication: ILL-DEFINED DISORDER
     Dosage: TAKE ONE DAILY TO REDUCE BLADDER OVERACTIVITY
     Route: 065
     Dates: start: 20200423
  11. FLUTICASONE FUROATE [Concomitant]
     Active Substance: FLUTICASONE FUROATE
     Indication: ILL-DEFINED DISORDER
     Dosage: USE ONCE DAILY
     Route: 065
     Dates: start: 20200325
  12. HYLO?TEAR [Concomitant]
     Indication: ILL-DEFINED DISORDER
     Dosage: USE AS DIRECTED
     Route: 065
     Dates: start: 20190524
  13. TRIMETHOPRIM. [Concomitant]
     Active Substance: TRIMETHOPRIM
     Indication: ILL-DEFINED DISORDER
     Dosage: TAKE ONE AT NIGHT
     Route: 065
     Dates: start: 20200401
  14. EZETIMIBE. [Concomitant]
     Active Substance: EZETIMIBE
     Indication: ILL-DEFINED DISORDER
     Dosage: TAKE ONE DAILY
     Route: 065
     Dates: start: 20191016
  15. CANDESARTAN. [Concomitant]
     Active Substance: CANDESARTAN
     Indication: ILL-DEFINED DISORDER
     Dosage: ONE TWICE DAILYTAKEN EACH DAY
     Route: 065
     Dates: start: 20200629

REACTIONS (2)
  - Dizziness [Recovered/Resolved]
  - Vomiting [Unknown]

NARRATIVE: CASE EVENT DATE: 20210112
